FAERS Safety Report 12171101 (Version 2)
Quarter: 2016Q1

REPORT INFORMATION
  Report Type: Spontaneous
  Country: US (occurrence: US)
  Receive Date: 20160311
  Receipt Date: 20160311
  Transmission Date: 20160526
  Serious: No
  Sender: FDA-Public Use
  Company Number: US-TEVA-636439ACC

PATIENT
  Sex: Female
  Weight: 57.2 kg

DRUGS (2)
  1. PARAGARD T 380A [Suspect]
     Active Substance: COPPER
     Indication: CONTRACEPTION
     Dates: start: 20160113, end: 20160211
  2. PARAGARD T 380A [Suspect]
     Active Substance: COPPER
     Dates: start: 20160211

REACTIONS (2)
  - Muscle spasms [Unknown]
  - Pain [Unknown]
